FAERS Safety Report 5751296-5 (Version None)
Quarter: 2008Q2

REPORT INFORMATION
  Report Type: 
  Country: None (occurrence: None)
  Receive Date: 20080528
  Receipt Date: 20080516
  Transmission Date: 20081010
  Serious: Yes (Other)
  Sender: FDA-Public Use
  Company Number: US-PFIZER INC-2008025467

PATIENT
  Sex: Female
  Weight: 72.1 kg

DRUGS (1)
  1. CHANTIX [Suspect]
     Indication: SMOKING CESSATION THERAPY
     Route: 048
     Dates: start: 20080301, end: 20080301

REACTIONS (5)
  - ASTHENIA [None]
  - CROHN'S DISEASE [None]
  - MUSCULAR WEAKNESS [None]
  - PERFORMANCE STATUS DECREASED [None]
  - URINARY TRACT INFECTION [None]
